FAERS Safety Report 16231456 (Version 2)
Quarter: 2021Q4

REPORT INFORMATION
  Report Type: Spontaneous
  Country: CA (occurrence: CA)
  Receive Date: 20190424
  Receipt Date: 20211222
  Transmission Date: 20220304
  Serious: Yes (Death)
  Sender: FDA-Public Use
  Company Number: CA-009507513-1904CAN009669

PATIENT
  Age: 55 Year
  Sex: Female

DRUGS (1)
  1. KEYTRUDA [Suspect]
     Active Substance: PEMBROLIZUMAB
     Dosage: 2 MILLIGRAM
     Route: 042
     Dates: start: 2018, end: 2018

REACTIONS (1)
  - Death [Fatal]
